FAERS Safety Report 5162508-3 (Version None)
Quarter: 2006Q4

REPORT INFORMATION
  Report Type: 
  Country: None (occurrence: None)
  Receive Date: 20061129
  Receipt Date: 20061129
  Transmission Date: 20070319
  Serious: No
  Sender: FDA-Public Use
  Company Number: None

PATIENT
  Age: 71 Year
  Sex: Female

DRUGS (1)
  1. KETEK [Suspect]
     Indication: BRONCHITIS
     Dosage: ONCE - ORAL
     Route: 048

REACTIONS (3)
  - ANOXIC ENCEPHALOPATHY [None]
  - CIRCULATORY COLLAPSE [None]
  - RESPIRATORY FAILURE [None]
